FAERS Safety Report 7392301-2 (Version None)
Quarter: 2011Q2

REPORT INFORMATION
  Report Type: 
  Country: None (occurrence: None)
  Receive Date: 20110404
  Receipt Date: 20110324
  Transmission Date: 20111010
  Serious: Yes (Hospitalization, Other)
  Sender: FDA-Public Use
  Company Number: JP-PFIZER INC-2011015071

PATIENT
  Age: 13 Year
  Sex: Female
  Weight: 26 kg

DRUGS (15)
  1. CELECOX [Suspect]
     Indication: BACK PAIN
     Dosage: 100 MG, 1X/DAY
     Route: 048
     Dates: start: 20101203, end: 20101216
  2. LOXOPROFEN [Concomitant]
     Route: 048
  3. PREDNISOLONE [Concomitant]
     Dosage: UNK
     Dates: start: 20080616
  4. SELBEX [Concomitant]
     Dosage: UNK
     Dates: start: 20080621
  5. ANHIBA [Concomitant]
     Dosage: UNK
     Dates: start: 20101216, end: 20101216
  6. PROGRAF [Suspect]
     Dosage: 2 MG, 2X/DAY
     Route: 048
     Dates: start: 20101217
  7. NAUZELIN [Concomitant]
     Dosage: UNK
     Dates: start: 20101216, end: 20101216
  8. NEUROTROPIN [Concomitant]
     Dosage: UNK
     Dates: start: 20091109
  9. CELLCEPT [Concomitant]
     Dosage: UNK
     Dates: start: 20091127
  10. GLAKAY [Concomitant]
     Dosage: UNK
     Dates: start: 20090106
  11. PURSENNID [Concomitant]
     Dosage: UNK
     Dates: start: 20080410
  12. PROGRAF [Suspect]
     Indication: GASTROENTERITIS
     Dosage: 2 MG, 2X/DAY
     Route: 048
     Dates: start: 20081224, end: 20101215
  13. TAKEPRON [Concomitant]
     Dosage: UNK
     Dates: start: 20080331
  14. ALFAROL [Concomitant]
     Dosage: UNK
     Dates: start: 20091124
  15. BAKTAR [Concomitant]
     Dosage: UNK

REACTIONS (3)
  - GASTROENTERITIS NOROVIRUS [None]
  - RENAL IMPAIRMENT [None]
  - CONVULSION [None]
